FAERS Safety Report 24213547 (Version 1)
Quarter: 2024Q3

REPORT INFORMATION
  Report Type: Spontaneous
  Country: IT (occurrence: IT)
  Receive Date: 20240815
  Receipt Date: 20240815
  Transmission Date: 20241017
  Serious: Yes (Hospitalization, Other)
  Sender: PFIZER
  Company Number: IT-002147023-PHBS2006IT17134

PATIENT
  Age: 56 Year
  Sex: Male

DRUGS (8)
  1. FLUCONAZOLE [Interacting]
     Active Substance: FLUCONAZOLE
     Indication: Candida pneumonia
     Dosage: UNK
  2. FLUCONAZOLE [Interacting]
     Active Substance: FLUCONAZOLE
     Indication: Pneumonia bacterial
  3. CYCLOSPORINE [Interacting]
     Active Substance: CYCLOSPORINE
     Indication: Immunosuppressant drug therapy
     Dosage: UNK (CYCLOSPORINE MICROEMULSION (CSA))
  4. EVEROLIMUS [Interacting]
     Active Substance: EVEROLIMUS
     Indication: Heart transplant
     Dosage: 1.5 MG, 2X/DAY
  5. EVEROLIMUS [Interacting]
     Active Substance: EVEROLIMUS
     Dosage: 3 MG, QD
     Dates: start: 2003
  6. AZATHIOPRINE [Concomitant]
     Active Substance: AZATHIOPRINE
     Indication: Immunosuppressant drug therapy
     Dosage: UNK
  7. CIPROFLOXACIN [Concomitant]
     Active Substance: CIPROFLOXACIN
     Indication: Pneumonia bacterial
     Dosage: UNK
  8. CIPROFLOXACIN [Concomitant]
     Active Substance: CIPROFLOXACIN
     Indication: Candida pneumonia

REACTIONS (5)
  - Drug interaction [Unknown]
  - Immunosuppressant drug level increased [Unknown]
  - Nephropathy toxic [Recovered/Resolved]
  - Acute kidney injury [Recovered/Resolved]
  - Leukopenia [Recovered/Resolved]
